FAERS Safety Report 7575232-4 (Version None)
Quarter: 2011Q2

REPORT INFORMATION
  Report Type: 
  Country: None (occurrence: None)
  Receive Date: 20110627
  Receipt Date: 20090305
  Transmission Date: 20111010
  Serious: Yes (Death, Hospitalization, Other)
  Sender: FDA-Public Use
  Company Number: US-BAYER-200914350NA

PATIENT
  Age: 5 Month
  Sex: Male
  Weight: 4.04 kg

DRUGS (17)
  1. TRASYLOL [Suspect]
     Indication: ARTERIAL SWITCH OPERATION
  2. DOPAMINE HCL [Concomitant]
     Dosage: 5 MCG/KG/MIN
     Route: 042
  3. LASIX [Concomitant]
     Dosage: 3 MG, QD
     Route: 048
  4. VANCOMYCIN [Concomitant]
     Dosage: 40 MG Q12HRS
     Route: 042
     Dates: start: 20051115
  5. TRASYLOL [Suspect]
     Indication: CONGENITAL PULMONARY VALVE ATRESIA
     Dosage: 42 ML PUMP PRIME DOSE, UNK
     Route: 042
     Dates: start: 20051115, end: 20051115
  6. CALCIUM GLUCONATE [Concomitant]
     Dosage: 400 MG, UNK
     Route: 042
  7. VECURONIUM BROMIDE [Concomitant]
     Route: 042
  8. TRASYLOL [Suspect]
     Indication: PRODUCT USED FOR UNKNOWN INDICATION
     Dosage: 1 ML, UNK
     Route: 042
     Dates: start: 20051115, end: 20051115
  9. DIGOXIN [Concomitant]
     Dosage: 15 MG, BID
     Route: 048
  10. LASIX [Concomitant]
     Dosage: 4 MG, UNK
     Route: 042
     Dates: start: 20051116
  11. FENTANYL [Concomitant]
     Route: 042
  12. PLATELETS [Concomitant]
     Dosage: UNK
     Dates: start: 20051115
  13. TRASYLOL [Suspect]
     Indication: VENTRICULAR SEPTAL DEFECT
     Dosage: 45 ML BOLUS, THEN INFUSION (ILLEGIBLE)
     Route: 042
     Dates: start: 20051115, end: 20051115
  14. PREVACID [Concomitant]
     Dosage: TWICE A DAY
     Route: 048
  15. MILRINONE [Concomitant]
     Route: 042
  16. BLOOD TRANSFUSION, AUXILIARY PRODUCTS [Concomitant]
     Dosage: UNK
     Dates: start: 20051115
  17. ASPIRIN [Concomitant]
     Dosage: 1/4 TABLET QD
     Route: 048

REACTIONS (13)
  - DEATH [None]
  - EMOTIONAL DISTRESS [None]
  - FEAR [None]
  - PAIN [None]
  - ANHEDONIA [None]
  - MULTI-ORGAN FAILURE [None]
  - UNEVALUABLE EVENT [None]
  - INJURY [None]
  - RENAL FAILURE [None]
  - RENAL IMPAIRMENT [None]
  - STRESS [None]
  - RENAL INJURY [None]
  - ANXIETY [None]
